FAERS Safety Report 11204979 (Version 1)
Quarter: 2015Q2

REPORT INFORMATION
  Report Type: Spontaneous
  Country: DE (occurrence: None)
  Receive Date: 20150617
  Receipt Date: 20150617
  Transmission Date: 20150821
  Serious: Yes (Hospitalization)
  Sender: FDA-Public Use
  Company Number: NL01PV15_39137

PATIENT
  Age: 80 Year
  Sex: Male

DRUGS (12)
  1. LYRICA [Suspect]
     Active Substance: PREGABALIN
  2. OPIPRAMOL (OPIPRAMOL) [Suspect]
     Active Substance: OPIPRAMOL
  3. OXYCODONE (OXYCODONE) [Suspect]
     Active Substance: OXYCODONE
  4. JANUVIA [Suspect]
     Active Substance: SITAGLIPTIN PHOSPHATE
  5. NOVAMIN [Suspect]
     Active Substance: PROCHLORPERAZINE MALEATE
     Dosage: DROPS
  6. TOREM (TORASEMIDE) [Suspect]
     Active Substance: TORSEMIDE
  7. LANTUS [Suspect]
     Active Substance: INSULIN GLARGINE
  8. TILIDINE (TILIDINE) [Suspect]
     Active Substance: TILIDINE
  9. UNKNOWN (TAMSULOSIN) UNKNOWN [Suspect]
     Active Substance: TAMSULOSIN
  10. FOLSAN (FOLIC ACID) [Suspect]
     Active Substance: FOLIC ACID
  11. ARCOXIA [Suspect]
     Active Substance: ETORICOXIB
  12. VIGANTOLETTEN (COLECALCIFEROL) [Suspect]
     Active Substance: CHOLECALCIFEROL

REACTIONS (5)
  - Fall [None]
  - Laceration [None]
  - Dizziness [None]
  - Fatigue [None]
  - Upper limb fracture [None]
